FAERS Safety Report 7720749-2 (Version None)
Quarter: 2011Q3

REPORT INFORMATION
  Report Type: 
  Country: None (occurrence: None)
  Receive Date: 20110831
  Receipt Date: 20110823
  Transmission Date: 20111222
  Serious: Yes (Other)
  Sender: FDA-Public Use
  Company Number: FR-ASTELLAS-2011EU001123

PATIENT
  Sex: Female

DRUGS (2)
  1. STALORAL [Concomitant]
     Indication: ALLERGY TO ANIMAL
     Dosage: UNK
     Route: 048
     Dates: start: 20080601
  2. TACROLIMUS [Suspect]
     Indication: DERMATITIS ATOPIC
     Dosage: 0.03 %, BID
     Route: 061
     Dates: start: 20080625

REACTIONS (1)
  - EPILEPSY [None]
